FAERS Safety Report 8598372-X (Version None)
Quarter: 2012Q3

REPORT INFORMATION
  Report Type: 
  Country: None (occurrence: None)
  Receive Date: 20120816
  Receipt Date: 20120808
  Transmission Date: 20120928
  Serious: Yes (Other)
  Sender: FDA-Public Use
  Company Number: US-PFIZER INC-2012172076

PATIENT
  Age: 31 Year
  Sex: Female
  Weight: 117.91 kg

DRUGS (10)
  1. EPIPEN [Suspect]
     Indication: HYPERSENSITIVITY
     Dosage: UNK
     Dates: start: 20120710
  2. METFORMIN [Concomitant]
     Indication: POLYCYSTIC OVARIES
     Dosage: 500 MG, 2X/DAY
     Route: 048
  3. ZONISAMIDE [Concomitant]
     Dosage: 100 MG, 1X/DAY
     Route: 048
  4. BUSPIRONE [Concomitant]
     Indication: DEPRESSION
     Dosage: 5 MG, 3X/DAY
     Route: 048
  5. FLUOXETINE [Concomitant]
     Indication: ANXIETY
  6. AMBIEN [Concomitant]
     Indication: INSOMNIA
     Dosage: 10 MG, 1X/DAY
     Route: 048
  7. CALCIUM [Concomitant]
     Dosage: UNK QD
     Route: 048
  8. MAGNESIUM [Concomitant]
     Dosage: UNK QD
     Route: 048
  9. BUSPIRONE [Concomitant]
     Indication: ANXIETY
  10. FLUOXETINE [Concomitant]
     Indication: DEPRESSION
     Dosage: 40 MG, 2X/DAY
     Route: 048

REACTIONS (2)
  - NEEDLE ISSUE [None]
  - DRUG INEFFECTIVE [None]
